FAERS Safety Report 7946330-8 (Version None)
Quarter: 2011Q4

REPORT INFORMATION
  Report Type: 
  Country: None (occurrence: None)
  Receive Date: 20111129
  Receipt Date: 20111117
  Transmission Date: 20120403
  Serious: Yes (Death, Hospitalization, Other)
  Sender: FDA-Public Use
  Company Number: NL-ACTELION-A-CH2011-55255

PATIENT
  Sex: Female

DRUGS (3)
  1. TRACLEER [Suspect]
     Indication: SKIN ULCER
     Dosage: UNK , UNK
     Route: 048
     Dates: start: 20080531
  2. VELCADE [Suspect]
  3. TRACLEER [Suspect]
     Dosage: 62.5 MG, BID
     Route: 048
     Dates: start: 20110921

REACTIONS (6)
  - PLASMACYTOMA [None]
  - LIVER DISORDER [None]
  - MULTIPLE MYELOMA [None]
  - ASPARTATE AMINOTRANSFERASE INCREASED [None]
  - ALANINE AMINOTRANSFERASE INCREASED [None]
  - BLOOD ALKALINE PHOSPHATASE INCREASED [None]
